FAERS Safety Report 11954073 (Version 1)
Quarter: 2016Q1

REPORT INFORMATION
  Report Type: Spontaneous
  Country: US (occurrence: US)
  Receive Date: 20160126
  Receipt Date: 20160126
  Transmission Date: 20160526
  Serious: Yes (Death, Hospitalization)
  Sender: FDA-Public Use
  Company Number: US-FRI-1000082239

PATIENT
  Age: 72 Year
  Sex: Male
  Weight: 90.45 kg

DRUGS (11)
  1. ASPIRIN. [Concomitant]
     Active Substance: ASPIRIN
     Dates: end: 201601
  2. LOSARTAN. [Concomitant]
     Active Substance: LOSARTAN
     Dates: end: 201601
  3. METFORMIN [Concomitant]
     Active Substance: METFORMIN HYDROCHLORIDE
     Dates: end: 201601
  4. BYSTOLIC [Suspect]
     Active Substance: NEBIVOLOL HYDROCHLORIDE
     Indication: HYPERTENSION
     Dosage: 20 MG
     Route: 048
     Dates: end: 201601
  5. FUROSEMIDE. [Concomitant]
     Active Substance: FUROSEMIDE
     Dates: end: 201601
  6. POTASSIUM [Concomitant]
     Active Substance: POTASSIUM
     Dates: end: 201601
  7. COUMADIN [Concomitant]
     Active Substance: WARFARIN SODIUM
     Dates: end: 201601
  8. DILTIAZEM [Concomitant]
     Active Substance: DILTIAZEM
     Dates: end: 201601
  9. GABAPENTIN. [Concomitant]
     Active Substance: GABAPENTIN
     Dates: end: 201601
  10. PRAVASTATIN [Concomitant]
     Active Substance: PRAVASTATIN\PRAVASTATIN SODIUM
     Dates: end: 201601
  11. TRAMADOL. [Concomitant]
     Active Substance: TRAMADOL
     Dates: end: 201601

REACTIONS (7)
  - Death [Fatal]
  - Acute kidney injury [Unknown]
  - Vomiting [Unknown]
  - Acute myocardial infarction [Unknown]
  - Respiratory failure [Unknown]
  - Pneumonia aspiration [Unknown]
  - Ventricular tachycardia [Unknown]

NARRATIVE: CASE EVENT DATE: 20160104
